FAERS Safety Report 13445301 (Version 1)
Quarter: 2017Q2

REPORT INFORMATION
  Report Type: Spontaneous
  Country: KR (occurrence: KR)
  Receive Date: 20170414
  Receipt Date: 20170414
  Transmission Date: 20170830
  Serious: Yes (Hospitalization)
  Sender: FDA-Public Use
  Company Number: KR-ALLERGAN-1714159US

PATIENT
  Age: 42 Month
  Sex: Female

DRUGS (1)
  1. EMLA [Suspect]
     Active Substance: LIDOCAINE\PRILOCAINE
     Indication: ANAESTHESIA
     Dosage: 30 G, SINGLE
     Route: 061

REACTIONS (3)
  - Intentional overdose [Unknown]
  - Seizure [Recovering/Resolving]
  - Methaemoglobinaemia [Recovering/Resolving]
